FAERS Safety Report 18525348 (Version 1)
Quarter: 2020Q4

REPORT INFORMATION
  Report Type: Spontaneous
  Country: GB (occurrence: GB)
  Receive Date: 20201120
  Receipt Date: 20201120
  Transmission Date: 20210114
  Serious: Yes (Other)
  Sender: FDA-Public Use
  Company Number: GB-009507513-2011GBR008641

PATIENT
  Age: 63 Year
  Sex: Male

DRUGS (6)
  1. LISINOPRIL. [Suspect]
     Active Substance: LISINOPRIL
     Indication: CARDIOVASCULAR DISORDER
     Dosage: 10 MILLIGRAM
     Route: 048
  2. ALBUTEROL. [Concomitant]
     Active Substance: ALBUTEROL
  3. LANSOPRAZOLE. [Concomitant]
     Active Substance: LANSOPRAZOLE
  4. PRAVASTATIN. [Concomitant]
     Active Substance: PRAVASTATIN
  5. BISOPROLOL [Concomitant]
     Active Substance: BISOPROLOL
  6. GLYCOPYRRONIUM [Concomitant]
     Active Substance: GLYCOPYRRONIUM

REACTIONS (4)
  - Haemoptysis [Recovering/Resolving]
  - Pruritus [Unknown]
  - Haematemesis [Recovering/Resolving]
  - Sensory disturbance [Unknown]

NARRATIVE: CASE EVENT DATE: 20160708
